FAERS Safety Report 5241875-6 (Version None)
Quarter: 2007Q1

REPORT INFORMATION
  Report Type: 
  Country: None (occurrence: None)
  Receive Date: 20070220
  Receipt Date: 20070206
  Transmission Date: 20070707
  Serious: Yes (Hospitalization, Other)
  Sender: FDA-Public Use
  Company Number: JP-PFIZER INC-2007004741

PATIENT
  Age: 10 Month
  Sex: Male
  Weight: 8.2 kg

DRUGS (7)
  1. UNASYN [Suspect]
     Indication: BRONCHITIS
     Dosage: DAILY DOSE:1.2GRAM
     Route: 042
     Dates: start: 20061219, end: 20061225
  2. ONON [Suspect]
     Indication: RESPIRATORY SYNCYTIAL VIRUS INFECTION
     Dosage: DAILY DOSE:55MG
     Route: 048
     Dates: start: 20061219, end: 20061225
  3. MUCOSOLVAN [Concomitant]
     Route: 048
  4. MUCODYNE [Concomitant]
     Route: 048
  5. HOKUNALIN [Concomitant]
     Route: 062
  6. BISOLVON [Concomitant]
  7. VENETLIN [Concomitant]
     Route: 055

REACTIONS (2)
  - HEPATIC FUNCTION ABNORMAL [None]
  - PYREXIA [None]
